FAERS Safety Report 9114615 (Version 1)
Quarter: 2013Q1

REPORT INFORMATION
  Report Type: Report from Study
  Country: US (occurrence: US)
  Receive Date: 20130129
  Receipt Date: 20130129
  Transmission Date: 20140127
  Serious: No
  Sender: FDA-Public Use
  Company Number: US-ABBOTT-12P-163-0930575-00

PATIENT
  Sex: Male
  Weight: 74.91 kg

DRUGS (3)
  1. HUMIRA 40 MG/0.8 ML PEN [Suspect]
     Indication: RHEUMATOID ARTHRITIS
     Dates: start: 201203
  2. CRESTOR [Concomitant]
     Indication: BLOOD CHOLESTEROL INCREASED
  3. TRIAMTERENE [Concomitant]
     Indication: HYPERTENSION
     Dosage: UNKNOWN PER CONSUMER

REACTIONS (2)
  - Nasopharyngitis [Recovered/Resolved]
  - Musculoskeletal pain [Not Recovered/Not Resolved]
